FAERS Safety Report 7593373-2 (Version None)
Quarter: 2011Q3

REPORT INFORMATION
  Report Type: 
  Country: None (occurrence: None)
  Receive Date: 20110706
  Receipt Date: 20110630
  Transmission Date: 20111222
  Serious: No
  Sender: FDA-Public Use
  Company Number: US-PFIZER INC-2011146741

PATIENT
  Sex: Male

DRUGS (8)
  1. LOPRESSOR [Suspect]
     Dosage: UNK
  2. FLOMAX [Suspect]
  3. ALTACE [Suspect]
     Dosage: 1.2 MG, DAILY
  4. LIPITOR [Suspect]
     Dosage: UNK
  5. ALTACE [Suspect]
     Dosage: UNK
  6. LANTUS [Suspect]
     Dosage: UNK
  7. PLAVIX [Suspect]
     Dosage: UNK
  8. VICTOZA [Suspect]
     Dosage: UNK

REACTIONS (2)
  - NAUSEA [None]
  - MUSCLE SPASMS [None]
